FAERS Safety Report 23669602 (Version 1)
Quarter: 2024Q1

REPORT INFORMATION
  Report Type: Spontaneous
  Country: US (occurrence: None)
  Receive Date: 20240325
  Receipt Date: 20240325
  Transmission Date: 20240410
  Serious: Yes (Hospitalization)
  Sender: FDA-Public Use
  Company Number: None

PATIENT
  Sex: Male

DRUGS (12)
  1. TACROLIMUS [Suspect]
     Active Substance: TACROLIMUS
     Indication: Renal transplant
     Dosage: OTHER FREQUENCY : EVERY MORNING;?
     Route: 048
     Dates: start: 20160712
  2. TACROLIMUS [Suspect]
     Active Substance: TACROLIMUS
     Dosage: OTHER FREQUENCY : EVERY EVENING;?
     Route: 048
  3. ASPIRIN LOW EC [Concomitant]
  4. FLOMAX [Concomitant]
     Active Substance: TAMSULOSIN HYDROCHLORIDE
  5. HUMALOG [Concomitant]
     Active Substance: INSULIN LISPRO
  6. LEXAPRO [Concomitant]
     Active Substance: ESCITALOPRAM OXALATE
  7. LISINOPRIL [Concomitant]
     Active Substance: LISINOPRIL
  8. MYCOPHENOLIC ACID [Concomitant]
     Active Substance: MYCOPHENOLIC ACID
  9. PLAVIX [Concomitant]
     Active Substance: CLOPIDOGREL BISULFATE
  10. PRAVASTATIN [Concomitant]
     Active Substance: PRAVASTATIN
  11. PREDNISONE [Concomitant]
     Active Substance: PREDNISONE
  12. PROBIO COLON CAP SUPPORT [Concomitant]

REACTIONS (1)
  - Infection [None]
